FAERS Safety Report 6535463-9 (Version None)
Quarter: 2010Q1

REPORT INFORMATION
  Report Type: 
  Country: None (occurrence: None)
  Receive Date: 20100113
  Receipt Date: 20100104
  Transmission Date: 20100710
  Serious: Yes (Hospitalization)
  Sender: FDA-Public Use
  Company Number: FR-CELGENEUS-056-C5013-09080730

PATIENT
  Sex: Female
  Weight: 34.5 kg

DRUGS (12)
  1. CC-5013 [Suspect]
     Indication: MULTIPLE MYELOMA
     Route: 048
     Dates: start: 20090611
  2. CC-5013 [Suspect]
     Route: 048
     Dates: start: 20090701
  3. CC-5013 [Suspect]
     Route: 048
     Dates: start: 20090924
  4. DEXAMETHASONE [Suspect]
     Indication: MULTIPLE MYELOMA
     Route: 048
     Dates: start: 20090730
  5. DEXAMETHASONE [Suspect]
     Route: 048
     Dates: start: 20090701
  6. DEXAMETHASONE [Suspect]
     Route: 065
     Dates: start: 20090923
  7. DURAGESIC-100 [Concomitant]
     Indication: BONE PAIN
     Route: 065
     Dates: start: 20090730, end: 20090925
  8. ASPEGIC 1000 [Concomitant]
     Indication: THROMBOSIS PROPHYLAXIS
     Dosage: SACHET
     Route: 048
     Dates: start: 20090701
  9. NEXIUM [Concomitant]
     Indication: PROPHYLAXIS
     Route: 048
     Dates: start: 20090701
  10. ATARAX [Concomitant]
     Indication: DRUG USE FOR UNKNOWN INDICATION
     Route: 065
  11. ZOMETA [Concomitant]
     Indication: DRUG USE FOR UNKNOWN INDICATION
     Route: 065
  12. KARDEGIC [Concomitant]
     Indication: DRUG USE FOR UNKNOWN INDICATION
     Route: 065

REACTIONS (1)
  - GENERAL PHYSICAL HEALTH DETERIORATION [None]
